FAERS Safety Report 5068225-2 (Version None)
Quarter: 2006Q3

REPORT INFORMATION
  Report Type: 
  Country: None (occurrence: None)
  Receive Date: 20060802
  Receipt Date: 20050609
  Transmission Date: 20061208
  Serious: No
  Sender: FDA-Public Use
  Company Number: US-BRISTOL-MYERS SQUIBB COMPANY-12998837

PATIENT
  Age: 70 Year
  Sex: Female
  Weight: 46 kg

DRUGS (14)
  1. COUMADIN [Suspect]
     Indication: CORONARY ARTERY BYPASS
     Dates: start: 19930101
  2. COUMADIN [Suspect]
     Indication: HEART VALVE REPLACEMENT
     Dates: start: 19930101
  3. ADVAIR DISKUS 100/50 [Concomitant]
  4. AMBIEN [Concomitant]
  5. COZAAR [Concomitant]
  6. DIGOXIN [Concomitant]
  7. FOSAMAX [Concomitant]
  8. LAMICTAL [Concomitant]
  9. LIPITOR [Concomitant]
  10. LITHIUM CARBONATE [Concomitant]
  11. LORAZEPAM [Concomitant]
  12. NORVASC [Concomitant]
  13. SPIRIVA [Concomitant]
     Route: 055
  14. SYNTHROID [Concomitant]

REACTIONS (2)
  - CONTUSION [None]
  - YELLOW SKIN [None]
